FAERS Safety Report 21273625 (Version 1)
Quarter: 2022Q3

REPORT INFORMATION
  Report Type: Spontaneous
  Country: US (occurrence: None)
  Receive Date: 20220830
  Receipt Date: 20220830
  Transmission Date: 20221027
  Serious: Yes (Other)
  Sender: FDA-Public Use
  Company Number: None

PATIENT
  Sex: Female

DRUGS (11)
  1. NUTROPIN AQ [Suspect]
     Active Substance: SOMATROPIN
     Indication: Dwarfism
     Dosage: 10MG/2ML SUBCUTANEOUS?INJECT 0.3 MG UNDER THE SKIN (SUBCUTANEOUS INJECTION) DAILY. DISCARD 28 DAYS A
     Route: 058
     Dates: start: 20150721
  2. AMARYL TAB [Concomitant]
  3. ARMOUR THYRO TAB [Concomitant]
  4. ASPIRIN CHW [Concomitant]
  5. CELLCEPT [Concomitant]
     Active Substance: MYCOPHENOLATE MOFETIL
  6. PREDNISONE [Concomitant]
     Active Substance: PREDNISONE
  7. PRILOSEC OTC TAB [Concomitant]
  8. PROGRAF [Concomitant]
     Active Substance: TACROLIMUS
  9. TERAZOSIN CAP [Concomitant]
  10. TRADJENTA TAB [Concomitant]
  11. ZYRTEC ALLGY TAB [Concomitant]

REACTIONS (2)
  - Surgery [None]
  - Therapy interrupted [None]
